FAERS Safety Report 7505304-1 (Version None)
Quarter: 2011Q2

REPORT INFORMATION
  Report Type: 
  Country: None (occurrence: None)
  Receive Date: 20110518
  Receipt Date: 20100913
  Transmission Date: 20111010
  Serious: Yes (Death)
  Sender: FDA-Public Use
  Company Number: 2010SP048825

PATIENT
  Sex: Male

DRUGS (7)
  1. CELESTONE [Suspect]
     Indication: DRUG EXPOSURE DURING PREGNANCY
     Dosage: TRPL
     Route: 064
     Dates: start: 20100523, end: 20100524
  2. VOLUVEN [Suspect]
     Indication: DRUG EXPOSURE DURING PREGNANCY
     Dosage: TRPL
     Route: 064
     Dates: start: 20100524, end: 20100524
  3. ADALAT [Suspect]
     Indication: DRUG EXPOSURE DURING PREGNANCY
     Dosage: TRPL
     Route: 064
     Dates: start: 20100524, end: 20100524
  4. ERYTHROMYCIN [Suspect]
     Indication: DRUG EXPOSURE DURING PREGNANCY
     Dosage: TRMA
     Route: 063
     Dates: start: 20100522, end: 20100524
  5. PHENYLEPHRINE HCL [Suspect]
     Indication: DRUG EXPOSURE DURING PREGNANCY
     Dosage: TRPL
     Route: 064
     Dates: start: 20100524, end: 20100524
  6. TRACTOCILE (ATOSIBAN) [Suspect]
     Indication: DRUG EXPOSURE DURING PREGNANCY
     Dosage: TRPL
     Route: 064
     Dates: start: 20100524, end: 20100524
  7. EPHEDRINE (OTHER MANUFACTURER) (EPHEDRINE) [Suspect]
     Indication: DRUG EXPOSURE DURING PREGNANCY
     Dosage: TRPL
     Route: 064
     Dates: start: 20100524, end: 20100524

REACTIONS (9)
  - MATERNAL DRUGS AFFECTING FOETUS [None]
  - PREMATURE RUPTURE OF MEMBRANES [None]
  - PREMATURE BABY [None]
  - DRUG INEFFECTIVE [None]
  - ESCHERICHIA TEST POSITIVE [None]
  - FOETAL ACIDOSIS [None]
  - STREPTOCOCCUS TEST POSITIVE [None]
  - PATHOGEN RESISTANCE [None]
  - INTRA-UTERINE DEATH [None]
